FAERS Safety Report 5239615-X (Version None)
Quarter: 2007Q1

REPORT INFORMATION
  Report Type: 
  Country: None (occurrence: None)
  Receive Date: 20070216
  Receipt Date: 20070208
  Transmission Date: 20070707
  Serious: Yes (Other)
  Sender: FDA-Public Use
  Company Number: GB-GLAXOSMITHKLINE-B0437782A

PATIENT
  Sex: Male

DRUGS (3)
  1. COMBIVIR [Suspect]
     Indication: HIV INFECTION
     Dosage: 2TABS PER DAY
     Dates: start: 20060425
  2. INVIRASE [Suspect]
     Indication: HIV INFECTION
     Dosage: 2000MG PER DAY
     Dates: start: 20060425
  3. NORVIR [Suspect]
     Dosage: 200MG PER DAY
     Dates: start: 20060425

REACTIONS (3)
  - CONGENITAL HYDRONEPHROSIS [None]
  - DRUG EXPOSURE DURING PREGNANCY [None]
  - NORMAL DELIVERY [None]
